FAERS Safety Report 14256172 (Version 5)
Quarter: 2018Q1

REPORT INFORMATION
  Report Type: Report from Study
  Country: BR (occurrence: BR)
  Receive Date: 20171206
  Receipt Date: 20180307
  Transmission Date: 20180508
  Serious: Yes (Hospitalization)
  Sender: FDA-Public Use
  Company Number: PHHY2017BR172612

PATIENT
  Sex: Female
  Weight: 86 kg

DRUGS (1)
  1. FORASEQ [Suspect]
     Active Substance: BUDESONIDE\FORMOTEROL FUMARATE
     Indication: PRODUCT USED FOR UNKNOWN INDICATION
     Dosage: 1 DF (BUDESONIDE 400 UG/ FORMOTEROL FUMARATE 12UG), BID
     Route: 055

REACTIONS (10)
  - Visual impairment [Unknown]
  - Stomatitis [Unknown]
  - Pneumonia [Not Recovered/Not Resolved]
  - Asthma [Not Recovered/Not Resolved]
  - Device issue [Unknown]
  - Drug ineffective [Unknown]
  - Hypersensitivity [Unknown]
  - Aphthous ulcer [Unknown]
  - Product packaging issue [Unknown]
  - Hypophagia [Unknown]
